FAERS Safety Report 8900115 (Version 1)
Quarter: 2012Q4

REPORT INFORMATION
  Report Type: 
  Country: US (occurrence: US)
  Receive Date: 20121109
  Receipt Date: 20121109
  Transmission Date: 20130627
  Serious: Yes (Other)
  Sender: FDA-Public Use
  Company Number: US-BAYER-2012-103464

PATIENT
  Age: 33 Year
  Sex: Female

DRUGS (2)
  1. BETASERON [Suspect]
     Indication: MULTIPLE SCLEROSIS
     Dosage: 8 miu, QOD
     Route: 058
     Dates: start: 20111204
  2. HERBS\UNSPECIFIED INGREDIENT [Suspect]
     Indication: HERBAL SUPPLEMENT

REACTIONS (3)
  - Glossodynia [Not Recovered/Not Resolved]
  - Insomnia [None]
  - Polyarthritis [None]
